FAERS Safety Report 22173299 (Version 4)
Quarter: 2023Q2

REPORT INFORMATION
  Report Type: Spontaneous
  Country: FR (occurrence: FR)
  Receive Date: 20230404
  Receipt Date: 20230605
  Transmission Date: 20230722
  Serious: Yes (Death, Hospitalization, Other)
  Sender: FDA-Public Use
  Company Number: FR-BRISTOL-MYERS SQUIBB COMPANY-2023-037411

PATIENT
  Age: 68 Year
  Sex: Male
  Weight: 64 kg

DRUGS (4)
  1. OPDIVO [Suspect]
     Active Substance: NIVOLUMAB
     Indication: Adenocarcinoma gastric
     Dosage: CIJ1
     Route: 041
     Dates: start: 20221230, end: 20230123
  2. OPDIVO [Suspect]
     Active Substance: NIVOLUMAB
     Dosage: TWO CYCLE. C2J1
     Dates: start: 20230113
  3. OXYCODONE [Concomitant]
     Active Substance: OXYCODONE
     Indication: Product used for unknown indication
     Dates: start: 20221124
  4. PANTOPRAZOLE [Concomitant]
     Active Substance: PANTOPRAZOLE
     Indication: Product used for unknown indication
     Dates: start: 20221124

REACTIONS (4)
  - Malignant neoplasm progression [Fatal]
  - Pneumonia [Unknown]
  - Generalised oedema [Unknown]
  - Malnutrition [Unknown]

NARRATIVE: CASE EVENT DATE: 20230123
